FAERS Safety Report 25482562 (Version 1)
Quarter: 2025Q2

REPORT INFORMATION
  Report Type: Spontaneous
  Country: DE (occurrence: DE)
  Receive Date: 20250626
  Receipt Date: 20250626
  Transmission Date: 20250716
  Serious: Yes (Hospitalization)
  Sender: MERCK SHARP & DOHME LLC
  Company Number: DE-009507513-2291804

PATIENT
  Age: 66 Year
  Sex: Female

DRUGS (2)
  1. PEMBROLIZUMAB [Suspect]
     Active Substance: PEMBROLIZUMAB
     Indication: Triple negative breast cancer
     Route: 042
     Dates: start: 20250401, end: 20250526
  2. PACLITAXEL [Suspect]
     Active Substance: PACLITAXEL
     Indication: Triple negative breast cancer
     Dates: start: 20250401, end: 20250526

REACTIONS (4)
  - Lichenoid keratosis [Recovering/Resolving]
  - Mucosal inflammation [Recovering/Resolving]
  - Blister [Recovering/Resolving]
  - Dermatitis [Recovering/Resolving]

NARRATIVE: CASE EVENT DATE: 20250501
